FAERS Safety Report 7912427-1 (Version None)
Quarter: 2011Q4

REPORT INFORMATION
  Report Type: 
  Country: None (occurrence: None)
  Receive Date: 20111114
  Receipt Date: 20111102
  Transmission Date: 20120403
  Serious: Yes (Other)
  Sender: FDA-Public Use
  Company Number: JP-PFIZER INC-2011277158

PATIENT
  Age: 74 Year
  Sex: Male
  Weight: 50 kg

DRUGS (5)
  1. LEVOLEUCOVORIN CALCIUM [Concomitant]
     Indication: COLORECTAL CANCER
     Dosage: 300 MG/BODY (209.8 MG/M2)
     Route: 041
     Dates: start: 20100127, end: 20100310
  2. CAMPTOSAR [Suspect]
     Indication: COLORECTAL CANCER
     Dosage: 220 MG/BODY (153.8 MG/M2)
     Route: 041
     Dates: start: 20100127, end: 20100310
  3. FLUOROURACIL [Concomitant]
     Dosage: 3500 MG/BODY/D1-2 (2447.6 MG/M2/D1-2)
     Route: 041
     Dates: start: 20100127, end: 20100310
  4. AVASTIN [Concomitant]
     Indication: COLORECTAL CANCER
     Dosage: 300 MG/BODY
     Route: 041
     Dates: start: 20100127, end: 20100310
  5. FLUOROURACIL [Concomitant]
     Indication: COLORECTAL CANCER
     Dosage: 500 MG/BODY (349.7 MG/M2)
     Route: 040
     Dates: start: 20100127, end: 20100310

REACTIONS (1)
  - CARDIAC FAILURE [None]
